FAERS Safety Report 10383621 (Version 2)
Quarter: 2014Q3

REPORT INFORMATION
  Report Type: Spontaneous
  Country: US (occurrence: US)
  Receive Date: 20140814
  Receipt Date: 20140919
  Transmission Date: 20150326
  Serious: Yes (Other)
  Sender: FDA-Public Use
  Company Number: US-BRISTOL-MYERS SQUIBB COMPANY-21278254

PATIENT
  Age: 74 Year
  Sex: Female
  Weight: 83.9 kg

DRUGS (9)
  1. TOPROL XL [Suspect]
     Active Substance: METOPROLOL SUCCINATE
     Indication: BLOOD PRESSURE
  2. LEVOTHYROXINE [Concomitant]
     Active Substance: LEVOTHYROXINE
     Indication: THYROID DISORDER
  3. LORAZEPAM. [Concomitant]
     Active Substance: LORAZEPAM
     Indication: MUSCLE SPASMS
  4. ALLOPURINOL. [Concomitant]
     Active Substance: ALLOPURINOL
     Indication: GOUT
  5. LIVALO [Concomitant]
     Active Substance: PITAVASTATIN CALCIUM
     Indication: BLOOD CHOLESTEROL
  6. PROTONIX [Concomitant]
     Active Substance: PANTOPRAZOLE SODIUM
     Indication: GASTRIC DISORDER
  7. ONGLYZA [Suspect]
     Active Substance: SAXAGLIPTIN HYDROCHLORIDE
     Indication: DIABETES MELLITUS
  8. PERCOCET [Concomitant]
     Active Substance: ACETAMINOPHEN\OXYCODONE HYDROCHLORIDE
     Indication: PAIN
  9. JANUVIA [Concomitant]
     Active Substance: SITAGLIPTIN PHOSPHATE
     Indication: DIABETES MELLITUS

REACTIONS (3)
  - Pneumonia [Recovering/Resolving]
  - Influenza [Recovering/Resolving]
  - Surgery [Recovering/Resolving]

NARRATIVE: CASE EVENT DATE: 201204
